FAERS Safety Report 5900726-4 (Version None)
Quarter: 2008Q3

REPORT INFORMATION
  Report Type: 
  Country: None (occurrence: None)
  Receive Date: 20080928
  Receipt Date: 20080916
  Transmission Date: 20090109
  Serious: Yes (Hospitalization)
  Sender: FDA-Public Use
  Company Number: JP-JNJFOC-20080900501

PATIENT
  Sex: Female
  Weight: 52 kg

DRUGS (15)
  1. REMICADE [Suspect]
     Route: 042
  2. REMICADE [Suspect]
     Indication: RHEUMATOID ARTHRITIS
     Route: 042
  3. RHEUMATREX [Suspect]
     Route: 048
  4. RHEUMATREX [Suspect]
     Indication: RHEUMATOID ARTHRITIS
     Route: 048
  5. PREDONINE [Suspect]
     Route: 048
  6. PREDONINE [Suspect]
     Route: 048
  7. PREDONINE [Suspect]
     Route: 048
  8. PREDONINE [Suspect]
     Route: 048
  9. PREDONINE [Suspect]
     Indication: RHEUMATOID ARTHRITIS
     Route: 048
  10. SEIBULE [Concomitant]
     Indication: TYPE 2 DIABETES MELLITUS
     Route: 048
  11. VOLTAREN [Concomitant]
     Indication: RHEUMATOID ARTHRITIS
     Route: 048
  12. FAMOTIDINE [Concomitant]
     Indication: GASTRITIS
     Route: 048
  13. GASLON [Concomitant]
     Indication: GASTRITIS
     Route: 048
  14. BONALON [Concomitant]
     Indication: OSTEOPOROSIS
     Route: 048
  15. LIPITOR [Concomitant]
     Indication: LIPIDS ABNORMAL
     Route: 048

REACTIONS (4)
  - ADRENAL INSUFFICIENCY [None]
  - CHLAMYDIAL INFECTION [None]
  - HEADACHE [None]
  - PERITONEAL TUBERCULOSIS [None]
